FAERS Safety Report 6656782-1 (Version None)
Quarter: 2010Q1

REPORT INFORMATION
  Report Type: 
  Country: None (occurrence: None)
  Receive Date: 20100329
  Receipt Date: 20100323
  Transmission Date: 20100710
  Serious: Yes (Other)
  Sender: FDA-Public Use
  Company Number: US-MERCK-1003USA04025

PATIENT
  Age: 12 Year
  Sex: Male

DRUGS (1)
  1. SINGULAIR [Suspect]
     Indication: ASTHMA
     Route: 048
     Dates: start: 20080301

REACTIONS (4)
  - ABNORMAL DREAMS [None]
  - AGITATION [None]
  - PSYCHOMOTOR HYPERACTIVITY [None]
  - SUICIDAL BEHAVIOUR [None]
